FAERS Safety Report 8188162-4 (Version None)
Quarter: 2012Q1

REPORT INFORMATION
  Report Type: 
  Country: None (occurrence: None)
  Receive Date: 20120221
  Receipt Date: 20111013
  Transmission Date: 20120608
  Serious: Yes (Disabling, Other)
  Sender: FDA-Public Use
  Company Number: PHEH2011US06819

PATIENT
  Age: 57 Year
  Sex: Male

DRUGS (3)
  1. TOBI [Suspect]
     Indication: BRONCHIECTASIS
     Dosage: 300 MG, QD FOR 7-10 DAYS, INHALATION
     Route: 055
     Dates: start: 20110804
  2. TOBI [Suspect]
     Indication: PROPHYLAXIS
     Dosage: 300 MG, QD FOR 7-10 DAYS, INHALATION
     Route: 055
     Dates: start: 20110804
  3. TOBI [Suspect]
     Indication: PSEUDOMONAS INFECTION
     Dosage: 300 MG, QD FOR 7-10 DAYS, INHALATION
     Route: 055
     Dates: start: 20110804

REACTIONS (2)
  - TINNITUS [None]
  - DEAFNESS [None]
